FAERS Safety Report 6177844-1 (Version None)
Quarter: 2009Q2

REPORT INFORMATION
  Report Type: 
  Country: None (occurrence: None)
  Receive Date: 20090504
  Receipt Date: 20090427
  Transmission Date: 20091009
  Serious: Yes (Hospitalization)
  Sender: FDA-Public Use
  Company Number: US-ELI_LILLY_AND_COMPANY-US200904006388

PATIENT
  Sex: Female
  Weight: 85.714 kg

DRUGS (20)
  1. BYETTA [Suspect]
     Indication: TYPE 2 DIABETES MELLITUS
     Dosage: 5 UG, 2/D
     Route: 058
     Dates: start: 20070101, end: 20070101
  2. BYETTA [Suspect]
     Dosage: 10 UG, 2/D
     Route: 058
     Dates: start: 20070101, end: 20070101
  3. BYETTA [Suspect]
     Dosage: 5 UG, 2/D
     Route: 058
     Dates: start: 20070101
  4. GLUCOTROL [Concomitant]
     Indication: TYPE 2 DIABETES MELLITUS
     Dosage: UNK, UNKNOWN
  5. TRICOR [Concomitant]
     Indication: BLOOD TRIGLYCERIDES
     Dosage: 145 MG, DAILY (1/D)
  6. ZETIA [Concomitant]
     Indication: BLOOD CHOLESTEROL
     Dosage: UNK, UNKNOWN
     Dates: end: 20070101
  7. CARDIZEM [Concomitant]
     Indication: BLOOD PRESSURE
     Dosage: 180 MG, DAILY (1/D)
  8. METFORMIN HCL [Concomitant]
     Indication: TYPE 2 DIABETES MELLITUS
     Dosage: 500 MG, 2/D
  9. LISINOPRIL [Concomitant]
     Indication: BLOOD PRESSURE
     Dosage: 20 MG, DAILY (1/D)
  10. LEVOXYL [Concomitant]
     Indication: THYROID DISORDER
     Dosage: 150 MG, 4/W
  11. LEVOXYL [Concomitant]
     Dosage: 225 MG, 3/W
  12. LIPITOR [Concomitant]
     Indication: BLOOD CHOLESTEROL
     Dosage: 40 MG, UNKNOWN
     Dates: end: 20090301
  13. LIPITOR [Concomitant]
     Dosage: 80 MG, DAILY (1/D)
     Dates: start: 20090301
  14. NEURONTIN [Concomitant]
     Indication: BACK PAIN
     Dosage: 300 MG, 3/D
     Dates: start: 20030101
  15. ASPIRIN [Concomitant]
     Indication: ANTICOAGULANT THERAPY
     Dosage: UNK, UNKNOWN
  16. MULTI-VITAMIN [Concomitant]
     Indication: SUPPLEMENTATION THERAPY
     Dosage: UNK, UNKNOWN
  17. FISH OIL [Concomitant]
     Indication: SUPPLEMENTATION THERAPY
     Dosage: 100 MG, DAILY (1/D)
  18. COQ10 [Concomitant]
     Indication: SUPPLEMENTATION THERAPY
     Dosage: UNK, UNKNOWN
  19. VITAMIN D [Concomitant]
     Indication: VITAMIN D DEFICIENCY
     Dosage: UNK, WEEKLY (1/W)
     Dates: end: 20090201
  20. VITAMIN D [Concomitant]
     Dosage: 50000 U, WEEKLY (1/W)
     Dates: start: 20090201

REACTIONS (14)
  - ARTHRALGIA [None]
  - ARTHROPATHY [None]
  - BLOOD CHOLESTEROL INCREASED [None]
  - BLOOD GLUCOSE DECREASED [None]
  - BLOOD TRIGLYCERIDES INCREASED [None]
  - DECREASED APPETITE [None]
  - FALL [None]
  - HIP FRACTURE [None]
  - MUSCULOSKELETAL CHEST PAIN [None]
  - PAIN IN EXTREMITY [None]
  - RIB FRACTURE [None]
  - VITAMIN D DEFICIENCY [None]
  - WEIGHT DECREASED [None]
  - WRIST FRACTURE [None]
